FAERS Safety Report 10787955 (Version 1)
Quarter: 2015Q1

REPORT INFORMATION
  Report Type: Spontaneous
  Country: US (occurrence: None)
  Receive Date: 20150211
  Receipt Date: 20150211
  Transmission Date: 20150721
  Serious: Yes (Other)
  Sender: FDA-Public Use
  Company Number: None

PATIENT
  Age: 2 Year
  Sex: Male
  Weight: 13.61 kg

DRUGS (1)
  1. TAMIFLU [Suspect]
     Active Substance: OSELTAMIVIR PHOSPHATE
     Indication: INFLUENZA
     Dosage: 5 ML TWICE DAILY PO; ONE DOSE ON 1/20 PM AND ONE DOSE ON 1/21 AM
     Route: 048
     Dates: start: 20150120, end: 20150121

REACTIONS (2)
  - Vomiting [None]
  - Dehydration [None]

NARRATIVE: CASE EVENT DATE: 20150120
